FAERS Safety Report 7776800-7 (Version None)
Quarter: 2011Q3

REPORT INFORMATION
  Report Type: 
  Country: None (occurrence: None)
  Receive Date: 20110923
  Receipt Date: 20110923
  Transmission Date: 20111222
  Serious: Yes (Hospitalization)
  Sender: FDA-Public Use
  Company Number: None

PATIENT
  Sex: Female
  Weight: 97 kg

DRUGS (2)
  1. CARBOPLATIN [Suspect]
     Dosage: 743 MG
  2. PACLITAXEL [Suspect]
     Dosage: 350 MG

REACTIONS (8)
  - PLATELET COUNT DECREASED [None]
  - LUNG INFILTRATION [None]
  - MALAISE [None]
  - PYREXIA [None]
  - PNEUMONIA [None]
  - HAEMOGLOBIN DECREASED [None]
  - WHITE BLOOD CELL COUNT INCREASED [None]
  - HAEMATOCRIT DECREASED [None]
